FAERS Safety Report 5964958-1 (Version None)
Quarter: 2008Q4

REPORT INFORMATION
  Report Type: 
  Country: None (occurrence: None)
  Receive Date: 20081124
  Receipt Date: 20081124
  Transmission Date: 20090506
  Serious: Yes (Life-Threatening, Hospitalization, Disabling, Other)
  Sender: FDA-Public Use
  Company Number: None

PATIENT
  Age: 22 Year
  Sex: Male
  Weight: 71.2147 kg

DRUGS (2)
  1. RISPERDAL [Suspect]
     Indication: BIPOLAR DISORDER
     Dosage: 2 MG TWICE A DAY
     Dates: start: 20060514, end: 20080529
  2. RISPERDAL [Suspect]
     Indication: SCHIZOPHRENIA
     Dosage: 2 MG TWICE A DAY
     Dates: start: 20060514, end: 20080529

REACTIONS (32)
  - ABDOMINAL PAIN UPPER [None]
  - ABNORMAL BEHAVIOUR [None]
  - ACTIVITIES OF DAILY LIVING IMPAIRED [None]
  - ALOPECIA [None]
  - ANOREXIA [None]
  - BRUXISM [None]
  - CARDIAC DISORDER [None]
  - DROOLING [None]
  - DRUG DEPENDENCE [None]
  - DYSARTHRIA [None]
  - DYSGEUSIA [None]
  - DYSKINESIA [None]
  - DYSPNOEA [None]
  - ECONOMIC PROBLEM [None]
  - FEAR [None]
  - HEADACHE [None]
  - INJURY [None]
  - INSOMNIA [None]
  - JOB DISSATISFACTION [None]
  - MALAISE [None]
  - MOVEMENT DISORDER [None]
  - MUSCLE TWITCHING [None]
  - NERVOUS SYSTEM DISORDER [None]
  - PREMATURE AGEING [None]
  - SENSORY LOSS [None]
  - SPEECH DISORDER [None]
  - TARDIVE DYSKINESIA [None]
  - TOOTH EROSION [None]
  - TREMOR [None]
  - VISION BLURRED [None]
  - VISUAL ACUITY REDUCED [None]
  - WITHDRAWAL SYNDROME [None]
